FAERS Safety Report 8390035-9 (Version None)
Quarter: 2012Q2

REPORT INFORMATION
  Report Type: 
  Country: None (occurrence: None)
  Receive Date: 20120529
  Receipt Date: 20120523
  Transmission Date: 20120825
  Serious: Yes (Death, Hospitalization, Other)
  Sender: FDA-Public Use
  Company Number: BR-BAYER-2011-111166

PATIENT
  Age: 50 Year
  Sex: Male

DRUGS (2)
  1. BLOOD AND RELATED PRODUCTS [Concomitant]
  2. NEXAVAR [Suspect]
     Indication: HEPATIC NEOPLASM MALIGNANT
     Dosage: 200 MG, BID
     Route: 048
     Dates: start: 20100101, end: 20101101

REACTIONS (12)
  - ASCITES [None]
  - DYSPNOEA [None]
  - LIP AND/OR ORAL CAVITY CANCER [None]
  - MUSCLE SPASMS [None]
  - MOUTH HAEMORRHAGE [None]
  - IMPAIRED HEALING [None]
  - HAEMORRHOIDAL HAEMORRHAGE [None]
  - SKIN HAEMORRHAGE [None]
  - SKIN DISORDER [None]
  - DEATH [None]
  - PAIN [None]
  - HAEMORRHOIDS [None]
